FAERS Safety Report 8125881-X (Version None)
Quarter: 2012Q1

REPORT INFORMATION
  Report Type: 
  Country: None (occurrence: None)
  Receive Date: 20120209
  Receipt Date: 20120207
  Transmission Date: 20120608
  Serious: Yes (Hospitalization, Other)
  Sender: FDA-Public Use
  Company Number: US-PFIZER INC-2012034085

PATIENT
  Sex: Male
  Weight: 97.5 kg

DRUGS (3)
  1. GEODON [Suspect]
     Indication: DEPRESSION
     Dosage: 80 MG, 2X/DAY
     Dates: end: 20110501
  2. DIVALPROEX SODIUM [Concomitant]
     Dosage: 500 MG, 2X/DAY
  3. GEODON [Suspect]
     Indication: HALLUCINATION

REACTIONS (3)
  - MENTAL DISORDER [None]
  - DIARRHOEA [None]
  - FALL [None]
